FAERS Safety Report 9747719 (Version 2)
Quarter: 2013Q4

REPORT INFORMATION
  Report Type: Spontaneous
  Country: US (occurrence: US)
  Receive Date: 20131212
  Receipt Date: 20131212
  Transmission Date: 20140711
  Serious: Yes (Other)
  Sender: FDA-Public Use
  Company Number: US-TEVA-384407USA

PATIENT
  Age: 35 Year
  Sex: Female
  Weight: 73.09 kg

DRUGS (3)
  1. PARAGARD 380A [Suspect]
     Indication: CONTRACEPTION
     Dates: start: 20130103, end: 20130131
  2. ACYCLOVIR [Concomitant]
  3. PRENATAL VITAMINS [Concomitant]
     Route: 048

REACTIONS (3)
  - Device dislocation [Recovered/Resolved]
  - Vaginal haemorrhage [Recovered/Resolved]
  - Pain [Recovered/Resolved]
